FAERS Safety Report 12240815 (Version 1)
Quarter: 2016Q2

REPORT INFORMATION
  Report Type: Spontaneous
  Country: TH (occurrence: TH)
  Receive Date: 20160406
  Receipt Date: 20160406
  Transmission Date: 20160815
  Serious: Yes (Hospitalization, Other)
  Sender: FDA-Public Use
  Company Number: TH-ACCORD-039246

PATIENT
  Age: 77 Year
  Sex: Male

DRUGS (11)
  1. ATORVASTATIN [Concomitant]
     Active Substance: ATORVASTATIN
  2. CLONAZEPAM. [Concomitant]
     Active Substance: CLONAZEPAM
  3. ESCITALOPRAM [Suspect]
     Active Substance: ESCITALOPRAM OXALATE
     Indication: DEPRESSION
  4. PIRIBEDIL/PIRIBEDIL MONOMETHANESULFONATE [Concomitant]
  5. GEMFIBROZIL. [Concomitant]
     Active Substance: GEMFIBROZIL
  6. PRAMIPEXOLE/PRAMIPEXOLE DIHYDROCHLORIDE [Concomitant]
  7. RIVASTIGMINE/RIVASTIGMINE TARTRATE [Concomitant]
     Dosage: PATCH 10 CM2
  8. MELATONIN [Concomitant]
     Active Substance: MELATONIN
  9. RASAGILINE/RASAGILINE MESYLATE [Interacting]
     Active Substance: RASAGILINE MESYLATE
     Indication: PARKINSON^S DISEASE
  10. TICLOPIDINE [Concomitant]
     Active Substance: TICLOPIDINE
  11. STALEVO [Concomitant]
     Active Substance: CARBIDOPA\ENTACAPONE\LEVODOPA
     Dosage: LEVODOPA 100 MG, CARBIDOPA 25 MG, AND ENTACAPONE 200 MG

REACTIONS (4)
  - Serotonin syndrome [Recovered/Resolved]
  - Haemodialysis [None]
  - Acute kidney injury [Not Recovered/Not Resolved]
  - Drug interaction [Unknown]
